FAERS Safety Report 6620496-4 (Version None)
Quarter: 2010Q1

REPORT INFORMATION
  Report Type: 
  Country: None (occurrence: None)
  Receive Date: 20100309
  Receipt Date: 20100303
  Transmission Date: 20100710
  Serious: Yes (Hospitalization)
  Sender: FDA-Public Use
  Company Number: ES-BRISTOL-MYERS SQUIBB COMPANY-14779847

PATIENT
  Age: 75 Year
  Sex: Male
  Weight: 54 kg

DRUGS (18)
  1. CISPLATIN [Suspect]
     Indication: NON-SMALL CELL LUNG CANCER STAGE III
     Dosage: RECENT INFUSION : 17AUG09
     Route: 042
     Dates: start: 20090713
  2. ETOPOSIDE [Suspect]
     Indication: NON-SMALL CELL LUNG CANCER STAGE III
     Dosage: RECENT INFUSION: 19AUG09
     Route: 042
     Dates: start: 20090713
  3. RADIATION THERAPY [Suspect]
     Indication: NON-SMALL CELL LUNG CANCER STAGE III
     Dosage: RECENT INFUSION: 21AUG09
     Route: 065
     Dates: start: 20090713
  4. OMEPRAZOL [Concomitant]
     Indication: PROPHYLAXIS
     Dates: start: 20090710
  5. HEMOVAS [Concomitant]
     Indication: PROPHYLAXIS
  6. MYCOSTATIN [Concomitant]
     Indication: PROPHYLAXIS
     Dates: start: 20090710
  7. TORECAN [Concomitant]
     Indication: PROPHYLAXIS
     Dates: start: 20090710
  8. EMEND [Concomitant]
     Indication: PROPHYLAXIS
     Dates: start: 20090710
  9. DURAGESIC-100 [Concomitant]
     Indication: PAIN
     Dates: start: 20090817
  10. ALMAX [Concomitant]
     Indication: PROPHYLAXIS
     Dates: start: 20090728
  11. KARVEA [Concomitant]
     Indication: HYPERTENSION
  12. SIMVASTATIN [Concomitant]
     Indication: HYPERCHOLESTEROLAEMIA
  13. NPH INSULIN [Concomitant]
     Indication: DIABETES MELLITUS
     Dates: start: 20090728
  14. DEZACOR [Concomitant]
     Indication: OESOPHAGITIS
     Dates: start: 20090814
  15. MOTILIUM [Concomitant]
     Indication: NAUSEA
     Dates: start: 20090728
  16. SUCRALFATE [Concomitant]
     Indication: OESOPHAGITIS
     Dates: start: 20090817
  17. DEXAMETHASONE [Concomitant]
     Indication: PROPHYLAXIS
     Dates: start: 20090710
  18. PENTOXIFYLLINE [Concomitant]
     Indication: PARAESTHESIA

REACTIONS (2)
  - NEUTROPENIA [None]
  - OESOPHAGITIS [None]
